FAERS Safety Report 17570137 (Version 2)
Quarter: 2021Q3

REPORT INFORMATION
  Report Type: Spontaneous
  Country: US (occurrence: US)
  Receive Date: 20200323
  Receipt Date: 20210728
  Transmission Date: 20211014
  Serious: No
  Sender: FDA-Public Use
  Company Number: US-BRISTOL-MYERS SQUIBB COMPANY-BMS-2020-024532

PATIENT
  Age: 56 Year
  Sex: Female

DRUGS (2)
  1. SPRYCEL [Suspect]
     Active Substance: DASATINIB
     Indication: NEOPLASM MALIGNANT
     Dosage: 100 MG EVERY DAY
     Route: 048
     Dates: start: 202001
  2. SPRYCEL [Suspect]
     Active Substance: DASATINIB
     Dosage: 100 MG DAILY
     Route: 048
     Dates: start: 20150106

REACTIONS (2)
  - Fluid retention [Recovered/Resolved]
  - Dyspnoea [Unknown]
